FAERS Safety Report 13662823 (Version 7)
Quarter: 2023Q1

REPORT INFORMATION
  Report Type: Spontaneous
  Country: CA (occurrence: CA)
  Receive Date: 20170619
  Receipt Date: 20230323
  Transmission Date: 20230417
  Serious: Yes (Death, Hospitalization, Other)
  Sender: FDA-Public Use
  Company Number: CA-BAXTER-2017BAX023446

PATIENT
  Age: 31 Year
  Sex: Female

DRUGS (32)
  1. PROPOFOL [Suspect]
     Active Substance: PROPOFOL
     Indication: Status epilepticus
     Dosage: UNK
     Route: 042
  2. PROPOFOL [Suspect]
     Active Substance: PROPOFOL
     Indication: Seizure
     Dosage: 200 MILLIGRAM,1 EVERY 1 HOUR
     Route: 042
  3. DEXTROSE [Suspect]
     Active Substance: DEXTROSE
     Indication: Product used for unknown indication
     Dosage: 50 ML, PRN, (DOSAGE FORM: SOLUTION INTRAVENOUS)
     Route: 042
  4. DOPAMINE [Suspect]
     Active Substance: DOPAMINE HYDROCHLORIDE
     Indication: Hypotension
     Dosage: UNK
     Route: 065
  5. MAGNESIUM SULFATE [Suspect]
     Active Substance: MAGNESIUM SULFATE
     Indication: Status epilepticus
     Dosage: 2 G, (DOSAGE FORM NOT SPECIFIED)
     Route: 065
  6. MAGNESIUM SULFATE [Suspect]
     Active Substance: MAGNESIUM SULFATE
     Dosage: 2 MG, (DOSAGE FORM NOT SPECIFIED)
     Route: 065
  7. MAGNESIUM SULFATE [Suspect]
     Active Substance: MAGNESIUM SULFATE
     Dosage: AT AN UNSPECIFIED DOSE AND FREQUENCY, (DOSAGE FORM: NOT SPECIFIED)
     Route: 065
  8. LORAZEPAM [Suspect]
     Active Substance: LORAZEPAM
     Indication: Status epilepticus
     Dosage: 2 MG
     Route: 065
  9. ATIVAN [Suspect]
     Active Substance: LORAZEPAM
     Indication: Bipolar disorder
     Dosage: 2 MG, (DOSAGE FORM: NOT SPECIFIED)
     Route: 065
  10. ATIVAN [Suspect]
     Active Substance: LORAZEPAM
     Indication: Status epilepticus
  11. CALCIUM CHLORIDE [Suspect]
     Active Substance: CALCIUM CHLORIDE
     Indication: Product used for unknown indication
     Dosage: 1 G, (DOSAGE FORM: NOT SPECIFIED)
     Route: 065
  12. DIAZEPAM [Suspect]
     Active Substance: DIAZEPAM
     Indication: Status epilepticus
     Dosage: 10 MG, (DOSAGE FORM: NOT SPECIFIED)
     Route: 065
  13. DIAZEPAM [Suspect]
     Active Substance: DIAZEPAM
     Indication: Seizure
  14. DEXTROSE [Suspect]
     Active Substance: DEXTROSE
     Indication: Product used for unknown indication
     Dosage: 50 MILLILITERS, (DOSAGE FORM: NOT SPECIFIED)
     Route: 065
  15. LORAZEPAM [Suspect]
     Active Substance: LORAZEPAM
     Indication: Status epilepticus
     Dosage: 2 MG, (DOSAGE FORM: NOT SPECIFIED)
     Route: 065
  16. METOCLOPRAMIDE [Suspect]
     Active Substance: METOCLOPRAMIDE
     Indication: Prophylaxis
     Dosage: 10 MG, (DOSAGE FORM: NOT SPECIFIED)
     Route: 042
  17. MIDAZOLAM [Suspect]
     Active Substance: MIDAZOLAM
     Indication: Seizure
     Dosage: 3 MILLIGRAM
     Route: 065
  18. MIDAZOLAM [Suspect]
     Active Substance: MIDAZOLAM
     Indication: Status epilepticus
  19. MIDAZOLAM HYDROCHLORIDE [Suspect]
     Active Substance: MIDAZOLAM HYDROCHLORIDE
     Indication: Seizure
     Dosage: 3 MILLIGRAM
     Route: 065
  20. MIDAZOLAM HYDROCHLORIDE [Suspect]
     Active Substance: MIDAZOLAM HYDROCHLORIDE
     Indication: Status epilepticus
  21. PAROXETINE HYDROCHLORIDE [Suspect]
     Active Substance: PAROXETINE HYDROCHLORIDE
     Indication: Bipolar disorder
     Dosage: UNK
     Route: 065
  22. PHENYLEPHRINE [Suspect]
     Active Substance: PHENYLEPHRINE HYDROCHLORIDE
     Indication: Hypotension
     Dosage: DOSAGE FORM:SOLUTION OPTHALMIC
     Route: 065
  23. PHENYTOIN [Suspect]
     Active Substance: PHENYTOIN
     Indication: Seizure
     Dosage: 1 GRAM
     Route: 065
  24. PHENYTOIN [Suspect]
     Active Substance: PHENYTOIN
     Indication: Status epilepticus
  25. SODIUM CITRATE [Suspect]
     Active Substance: SODIUM CITRATE
     Indication: Prophylaxis
     Dosage: 30 ML, (DOSAGE FORM: NOT SPECIFIED)
     Route: 048
  26. SUCCINYLCHOLINE [Suspect]
     Active Substance: SUCCINYLCHOLINE
     Indication: Endotracheal intubation
     Dosage: 100 MILLIGRAM, PRN
     Route: 042
  27. SUCCINYLCHOLINE CHLORIDE [Suspect]
     Active Substance: SUCCINYLCHOLINE CHLORIDE
     Indication: Endotracheal intubation
     Dosage: 100 MG, (DOSAGE FORM: LIQUID INTRAVENOUS)
     Route: 042
  28. SUCCINYLCHOLINE CHLORIDE [Suspect]
     Active Substance: SUCCINYLCHOLINE CHLORIDE
     Dosage: 100 MG, (DOSAGE FORM: LIQUID INTRAVENOUS)
     Route: 065
  29. THIOPENTAL SODIUM [Suspect]
     Active Substance: THIOPENTAL SODIUM
     Indication: Status epilepticus
     Dosage: 300 MG, 1 EVERY 1 HOUR, (DOSAGE FORM: INTRAVENOUS INFUSION)
     Route: 042
  30. THIOPENTAL SODIUM [Suspect]
     Active Substance: THIOPENTAL SODIUM
     Indication: Endotracheal intubation
     Dosage: AT AN UNSPECIFIED DOSE AND FREQUENCY, (DOSAGE FORM: INTRAVENOUS INFUSION)
     Route: 042
  31. THIOPENTAL SODIUM [Suspect]
     Active Substance: THIOPENTAL SODIUM
     Indication: Seizure
     Dosage: 100 MILLIGRAM,PRN
     Route: 042
  32. THIOPENTAL SODIUM [Suspect]
     Active Substance: THIOPENTAL SODIUM
     Dosage: 250 MILLIGRAM,PRN
     Route: 042

REACTIONS (21)
  - Diabetes insipidus [Fatal]
  - Left ventricular dysfunction [Fatal]
  - Renal impairment [Fatal]
  - Blood bicarbonate decreased [Fatal]
  - Blood calcium decreased [Fatal]
  - Blood magnesium decreased [Fatal]
  - Blood pH decreased [Fatal]
  - Drug ineffective [Fatal]
  - Encephalopathy [Fatal]
  - Loss of consciousness [Fatal]
  - Oxygen saturation abnormal [Fatal]
  - PO2 increased [Fatal]
  - PCO2 increased [Fatal]
  - Renal ischaemia [Fatal]
  - Off label use [Fatal]
  - Hypotension [Fatal]
  - Maternal exposure during pregnancy [Fatal]
  - Clonus [Recovered/Resolved]
  - Electroencephalogram abnormal [Recovered/Resolved]
  - Seizure [Recovered/Resolved]
  - Status epilepticus [Recovered/Resolved]
